FAERS Safety Report 6011414-0 (Version None)
Quarter: 2008Q4

REPORT INFORMATION
  Report Type: 
  Country: None (occurrence: None)
  Receive Date: 20081218
  Receipt Date: 19990129
  Transmission Date: 20090506
  Serious: Yes (Death, Other)
  Sender: FDA-Public Use
  Company Number: CA-ROCHE-113009

PATIENT
  Sex: Female

DRUGS (4)
  1. TASMAR [Suspect]
     Indication: DRUG USE FOR UNKNOWN INDICATION
     Route: 048
     Dates: start: 19981112, end: 19981203
  2. HALDOL [Suspect]
     Indication: DRUG USE FOR UNKNOWN INDICATION
     Route: 065
     Dates: end: 19981224
  3. MORPHINE [Suspect]
     Indication: DRUG USE FOR UNKNOWN INDICATION
     Route: 065
     Dates: end: 19981224
  4. SINEMET [Concomitant]
     Dates: start: 19981203, end: 19981224

REACTIONS (5)
  - BACTERAEMIA [None]
  - CONFUSIONAL STATE [None]
  - DEATH [None]
  - DECREASED APPETITE [None]
  - SUICIDAL IDEATION [None]
